FAERS Safety Report 4680515-1 (Version None)
Quarter: 2005Q2

REPORT INFORMATION
  Report Type: 
  Country: None (occurrence: None)
  Receive Date: 20050601
  Receipt Date: 20050516
  Transmission Date: 20051028
  Serious: Yes (Death, Other)
  Sender: FDA-Public Use
  Company Number: US111650

PATIENT
  Age: 45 Year
  Sex: Female

DRUGS (4)
  1. ENBREL [Suspect]
     Indication: RHEUMATOID ARTHRITIS
     Dates: start: 19990906, end: 20000101
  2. ENBREL [Suspect]
     Indication: RHEUMATOID ARTHRITIS
     Dates: end: 20020801
  3. METHOTREXATE [Concomitant]
  4. CORTICOSTEROID NOS [Concomitant]

REACTIONS (7)
  - ARTHRALGIA [None]
  - EXTRANODAL MARGINAL ZONE B-CELL LYMPHOMA (MALT TYPE) [None]
  - PAIN [None]
  - PERICARDITIS INFECTIVE [None]
  - PNEUMONIA [None]
  - SEPSIS [None]
  - SKIN FISSURES [None]
